FAERS Safety Report 16357961 (Version 2)
Quarter: 2019Q2

REPORT INFORMATION
  Report Type: Spontaneous
  Country: US (occurrence: US)
  Receive Date: 20190527
  Receipt Date: 20190627
  Transmission Date: 20190711
  Serious: Yes (Other)
  Sender: FDA-Public Use
  Company Number: US-PFIZER INC-2019158233

PATIENT
  Age: 53 Year
  Sex: Female

DRUGS (1)
  1. DESVENLAFAXINE SUCCINATE MONOHYDRATE [Suspect]
     Active Substance: DESVENLAFAXINE SUCCINATE
     Dosage: 100 MG, UNK
     Dates: start: 2017

REACTIONS (9)
  - Suicidal ideation [Unknown]
  - Foot fracture [Recovering/Resolving]
  - Feeling abnormal [Unknown]
  - Vomiting [Unknown]
  - Thoracic vertebral fracture [Unknown]
  - Gait disturbance [Unknown]
  - Headache [Unknown]
  - Somnolence [Unknown]
  - Musculoskeletal discomfort [Unknown]
